FAERS Safety Report 14228893 (Version 1)
Quarter: 2017Q4

REPORT INFORMATION
  Report Type: Spontaneous
  Country: CA (occurrence: CA)
  Receive Date: 20171128
  Receipt Date: 20171128
  Transmission Date: 20180321
  Serious: Yes (Other)
  Sender: FDA-Public Use
  Company Number: CA-ROCHE-2027073

PATIENT
  Sex: Female

DRUGS (4)
  1. PREDNISONE. [Suspect]
     Active Substance: PREDNISONE
     Indication: PRODUCT USED FOR UNKNOWN INDICATION
     Route: 065
  2. PLAQUENIL [Suspect]
     Active Substance: HYDROXYCHLOROQUINE SULFATE
     Indication: PRODUCT USED FOR UNKNOWN INDICATION
     Route: 065
     Dates: start: 201212, end: 201509
  3. CELLCEPT [Suspect]
     Active Substance: MYCOPHENOLATE MOFETIL\MYCOPHENOLATE MOFETIL HYDROCHLORIDE
     Indication: PRODUCT USED FOR UNKNOWN INDICATION
     Dosage: MAXIMUM DOSE 1.5 GM BID (ONGOING)
     Route: 065
     Dates: start: 201405
  4. METHOTREXATE. [Suspect]
     Active Substance: METHOTREXATE
     Indication: DERMATOMYOSITIS
     Route: 065
     Dates: start: 2012, end: 201405

REACTIONS (11)
  - Mental disorder [Unknown]
  - Ill-defined disorder [Unknown]
  - Drug ineffective [Unknown]
  - Pruritus [Unknown]
  - Drug intolerance [Unknown]
  - Fatigue [Unknown]
  - Dermatomyositis [Unknown]
  - Rash [Unknown]
  - Muscle injury [Unknown]
  - Demyelination [Unknown]
  - Myalgia [Unknown]
